FAERS Safety Report 6278333-6 (Version None)
Quarter: 2009Q3

REPORT INFORMATION
  Report Type: 
  Country: None (occurrence: None)
  Receive Date: 20090720
  Receipt Date: 20090720
  Transmission Date: 20100115
  Serious: No
  Sender: FDA-Public Use
  Company Number: None

PATIENT
  Age: 43 Year
  Sex: Female
  Weight: 86.1834 kg

DRUGS (2)
  1. DEXAMETHASONE 4MG TAB [Suspect]
     Indication: ASTHMA
     Dosage: 4MG TAPERED PO
     Route: 048
     Dates: start: 20090712, end: 20090718
  2. SOLU-MEDROL [Suspect]
     Indication: ASTHMA
     Dosage: 80MG ONCE IM ONE TIME IM DOSE
     Route: 030
     Dates: start: 20090711, end: 20090711

REACTIONS (2)
  - CONDITION AGGRAVATED [None]
  - VISION BLURRED [None]
